FAERS Safety Report 11898190 (Version 1)
Quarter: 2016Q1

REPORT INFORMATION
  Report Type: Spontaneous
  Country: US (occurrence: None)
  Receive Date: 20160107
  Receipt Date: 20160107
  Transmission Date: 20160526
  Serious: Yes (Life-Threatening, Disabling, Other)
  Sender: FDA-Public Use
  Company Number: None

PATIENT
  Age: 43 Year
  Sex: Female

DRUGS (12)
  1. VITAMIN E [Concomitant]
     Active Substance: .ALPHA.-TOCOPHEROL
  2. VITAMIN B COMPLEX [Concomitant]
     Active Substance: CYANOCOBALAMIN\DEXPANTHENOL\NIACINAMIDE\PYRIDOXINE HYDROCHLORIDE\RIBOFLAVIN 5^-PHOSPHATE SODIUM\THIAMINE HYDROCHLORIDE\VITAMIN B COMPLEX
  3. BENZTROPINE [Concomitant]
     Active Substance: BENZTROPINE
  4. VITAMIN D3 [Concomitant]
     Active Substance: CHOLECALCIFEROL
  5. MAGNESIUM [Concomitant]
     Active Substance: MAGNESIUM
  6. OXCARBAZEPINE (TRILEPTAL) [Concomitant]
  7. EMERGENCY C [Concomitant]
  8. ZOLOFT [Concomitant]
     Active Substance: SERTRALINE HYDROCHLORIDE
  9. ABILIFY [Suspect]
     Active Substance: ARIPIPRAZOLE
     Indication: DEPRESSION
     Dosage: MAY 18, 2015 - STARTED WEANING OFF
     Route: 048
     Dates: start: 20150518
  10. TOPAMAX [Concomitant]
     Active Substance: TOPIRAMATE
  11. NAPROXEN. [Concomitant]
     Active Substance: NAPROXEN
  12. CYCLOBENZAPR [Concomitant]

REACTIONS (6)
  - Gait disturbance [None]
  - Loss of employment [None]
  - Weight increased [None]
  - Tremor [None]
  - Road traffic accident [None]
  - Tongue disorder [None]

NARRATIVE: CASE EVENT DATE: 201505
